FAERS Safety Report 15924547 (Version 3)
Quarter: 2019Q3

REPORT INFORMATION
  Report Type: Report from Study
  Country: IL (occurrence: IL)
  Receive Date: 20190206
  Receipt Date: 20190726
  Transmission Date: 20191004
  Serious: No
  Sender: FDA-Public Use
  Company Number: IL-IPSEN BIOPHARMACEUTICALS, INC.-2018-11575

PATIENT
  Sex: Female

DRUGS (2)
  1. SOMATULINE AUTOGEL 120MG [Suspect]
     Active Substance: LANREOTIDE ACETATE
     Indication: NEUROENDOCRINE TUMOUR
     Dosage: 120 MG
     Route: 065
     Dates: start: 20170322
  2. CLEXANE [Concomitant]
     Active Substance: ENOXAPARIN SODIUM

REACTIONS (4)
  - Vaginal haemorrhage [Unknown]
  - Uterine leiomyoma [Unknown]
  - Alopecia [Unknown]
  - Infectious mononucleosis [Recovered/Resolved]
